FAERS Safety Report 19971283 (Version 2)
Quarter: 2021Q4

REPORT INFORMATION
  Report Type: Spontaneous
  Country: US (occurrence: US)
  Receive Date: 20211019
  Receipt Date: 20211025
  Transmission Date: 20220303
  Serious: Yes (Other)
  Sender: FDA-Public Use
  Company Number: US-GLAXOSMITHKLINE-US2021GSK215512

PATIENT
  Sex: Female

DRUGS (10)
  1. ZANTAC [Suspect]
     Active Substance: RANITIDINE HYDROCHLORIDE
     Indication: Dyspepsia
     Dosage: 75 MG,OCCASIONAL
     Route: 065
     Dates: start: 201601, end: 201806
  2. ZANTAC [Suspect]
     Active Substance: RANITIDINE HYDROCHLORIDE
     Dosage: 150 MG,OCCASIONAL
     Route: 065
     Dates: start: 201601, end: 201806
  3. ZANTAC [Suspect]
     Active Substance: RANITIDINE HYDROCHLORIDE
     Indication: Dyspepsia
     Dosage: 75 MG,OCCASIONAL
     Route: 065
     Dates: start: 201601, end: 201806
  4. ZANTAC [Suspect]
     Active Substance: RANITIDINE HYDROCHLORIDE
     Dosage: 150 MG,OCCASIONAL
     Route: 065
     Dates: start: 201601, end: 201806
  5. ZANTAC [Suspect]
     Active Substance: RANITIDINE HYDROCHLORIDE
     Indication: Dyspepsia
     Dosage: 75 MG, OCCASIONA
     Route: 065
     Dates: start: 201601, end: 201806
  6. ZANTAC [Suspect]
     Active Substance: RANITIDINE HYDROCHLORIDE
     Dosage: 150 MG,OCCASIONAL
     Route: 065
     Dates: start: 201601, end: 201806
  7. RANITIDINE [Suspect]
     Active Substance: RANITIDINE
     Indication: Dyspepsia
     Dosage: 75 MG,OCCASIONAL
     Route: 065
     Dates: start: 201601, end: 201806
  8. RANITIDINE [Suspect]
     Active Substance: RANITIDINE
     Dosage: 150 MG,OCCASIONAL
     Route: 065
     Dates: start: 201601, end: 201806
  9. RANITIDINE [Suspect]
     Active Substance: RANITIDINE
     Indication: Dyspepsia
     Dosage: 75 MG,OCCASIONAL
     Route: 065
     Dates: start: 201807, end: 201909
  10. RANITIDINE [Suspect]
     Active Substance: RANITIDINE
     Indication: Dyspepsia
     Dosage: 75 MG,OCCASIONAL
     Route: 065
     Dates: start: 201807, end: 201909

REACTIONS (1)
  - Gastric cancer [Unknown]
